FAERS Safety Report 10367479 (Version 1)
Quarter: 2014Q3

REPORT INFORMATION
  Report Type: Report from Study
  Country: KR (occurrence: KR)
  Receive Date: 20140807
  Receipt Date: 20140807
  Transmission Date: 20150326
  Serious: Yes (Hospitalization)
  Sender: FDA-Public Use
  Company Number: KR-OTSUKA-JP-2014-15308

PATIENT
  Age: 78 Year
  Sex: Male

DRUGS (13)
  1. MUTERAN [Concomitant]
     Dosage: UNK
     Dates: start: 20110620, end: 20110709
  2. SOMAZINA [Concomitant]
     Dosage: UNK
     Dates: start: 20110618, end: 20110630
  3. LIPITOR [Concomitant]
     Active Substance: ATORVASTATIN CALCIUM
     Dosage: UNK
     Dates: start: 20110619, end: 20110716
  4. ALMAGEL [Concomitant]
     Dosage: UNK
     Dates: start: 20110620, end: 20110630
  5. MUCOMYST [Concomitant]
     Active Substance: ACETYLCYSTEINE
     Dosage: UNK
     Dates: start: 20110620, end: 20110709
  6. DENOGAN [Concomitant]
     Dosage: UNK
     Dates: start: 20110620, end: 20110701
  7. BLINDED PROBUCOL [Suspect]
     Active Substance: PROBUCOL
     Indication: CEREBRAL INFARCTION
     Dosage: UNK
     Route: 048
     Dates: start: 20110624, end: 20110707
  8. CEFTRIAXONE SODIUM. [Concomitant]
     Active Substance: CEFTRIAXONE SODIUM
     Dosage: UNK
     Dates: start: 20110621, end: 20110704
  9. BLINDED ASPIRIN [Suspect]
     Active Substance: ASPIRIN
     Indication: CEREBRAL INFARCTION
     Dosage: UNK
     Route: 048
     Dates: start: 20110624, end: 20110707
  10. BLINDED CILOSTAZOL [Suspect]
     Active Substance: CILOSTAZOL
     Indication: CEREBRAL INFARCTION
     Dosage: UNK
     Route: 048
     Dates: start: 20110624, end: 20110707
  11. PLACEBO [Suspect]
     Active Substance: UNSPECIFIED INGREDIENT
     Indication: CEREBRAL INFARCTION
     Dosage: UNK
     Route: 048
     Dates: start: 20110624, end: 20110707
  12. STILLEN [Concomitant]
     Dosage: UNK
     Dates: start: 20110620, end: 20110630
  13. FULLGRAM [Concomitant]
     Dosage: UNK
     Dates: start: 20110620, end: 20110704

REACTIONS (1)
  - Intra-abdominal haematoma [Recovered/Resolved]

NARRATIVE: CASE EVENT DATE: 20110627
